FAERS Safety Report 13850043 (Version 1)
Quarter: 2017Q3

REPORT INFORMATION
  Report Type: Spontaneous
  Country: MX (occurrence: MX)
  Receive Date: 20170809
  Receipt Date: 20170809
  Transmission Date: 20171127
  Serious: Yes (Death, Other)
  Sender: FDA-Public Use
  Company Number: MX-ACTELION-A-CH2017-157410

PATIENT
  Age: 65 Year
  Sex: Female

DRUGS (4)
  1. OXYGEN. [Concomitant]
     Active Substance: OXYGEN
  2. ZEPENDO [Suspect]
     Active Substance: MACITENTAN
     Indication: PORTOPULMONARY HYPERTENSION
     Dosage: 10 MG, OD
     Route: 048
     Dates: start: 201705, end: 20170615
  3. FLUTICASONE. [Concomitant]
     Active Substance: FLUTICASONE
  4. OMEPRAZOLE. [Concomitant]
     Active Substance: OMEPRAZOLE

REACTIONS (2)
  - Chronic respiratory failure [Unknown]
  - Death [Fatal]

NARRATIVE: CASE EVENT DATE: 201705
